FAERS Safety Report 21105079 (Version 1)
Quarter: 2022Q3

REPORT INFORMATION
  Report Type: Spontaneous
  Country: US (occurrence: None)
  Receive Date: 20220719
  Receipt Date: 20220719
  Transmission Date: 20221027
  Serious: No
  Sender: FDA-Public Use
  Company Number: None

PATIENT
  Age: 82 Year
  Sex: Female

DRUGS (12)
  1. DEPAKOTE [Suspect]
     Active Substance: DIVALPROEX SODIUM
     Indication: Agitation
  2. SEROQUEL [Suspect]
     Active Substance: QUETIAPINE FUMARATE
  3. MELATONIN [Concomitant]
     Active Substance: MELATONIN
  4. ENSURE [Concomitant]
     Active Substance: AMINO ACIDS\DEXTROSE\ELECTROLYTES NOS\SOYBEAN OIL\VITAMINS
  5. SEROQUEL [Concomitant]
     Active Substance: QUETIAPINE FUMARATE
  6. DEPAKOTE [Concomitant]
     Active Substance: DIVALPROEX SODIUM
  7. hydroxxxxx(?) [Concomitant]
  8. Joshua Tree Healing Salve [Concomitant]
  9. UNSPECIFIED INGREDIENT [Concomitant]
     Active Substance: UNSPECIFIED INGREDIENT
  10. MORPHINE [Concomitant]
     Active Substance: MORPHINE
  11. ZOLOFT [Concomitant]
     Active Substance: SERTRALINE HYDROCHLORIDE
  12. HALDOL [Concomitant]
     Active Substance: HALOPERIDOL

REACTIONS (6)
  - Weight decreased [None]
  - Sleep disorder [None]
  - Fatigue [None]
  - Agitation [None]
  - Confusional state [None]
  - Disorganised speech [None]

NARRATIVE: CASE EVENT DATE: 20220712
